FAERS Safety Report 24917215 (Version 1)
Quarter: 2025Q1

REPORT INFORMATION
  Report Type: Spontaneous
  Country: US (occurrence: None)
  Receive Date: 20250202
  Receipt Date: 20250202
  Transmission Date: 20250409
  Serious: Yes (Disabling, Other)
  Sender: FDA-CTU
  Company Number: None

PATIENT
  Age: 27 Year
  Sex: Male
  Weight: 65 kg

DRUGS (4)
  1. BRINTELLIX [Suspect]
     Active Substance: VORTIOXETINE HYDROBROMIDE
     Indication: Depression
     Dates: start: 20211007, end: 20220404
  2. LEXAPRO [Suspect]
     Active Substance: ESCITALOPRAM OXALATE
  3. PROBIOTICS NOS [Concomitant]
     Active Substance: PROBIOTICS NOS
  4. multi-vitamines [Concomitant]

REACTIONS (9)
  - Sexual dysfunction [None]
  - Libido decreased [None]
  - Emotional disorder [None]
  - Therapy cessation [None]
  - Anorgasmia [None]
  - Genital hypoaesthesia [None]
  - Anhedonia [None]
  - Erectile dysfunction [None]
  - Quality of life decreased [None]

NARRATIVE: CASE EVENT DATE: 20211007
